FAERS Safety Report 10269360 (Version 3)
Quarter: 2014Q4

REPORT INFORMATION
  Report Type: Report from Study
  Country: IT (occurrence: IT)
  Receive Date: 20140701
  Receipt Date: 20141120
  Transmission Date: 20150528
  Serious: Yes (Life-Threatening, Hospitalization)
  Sender: FDA-Public Use
  Company Number: IT-ROCHE-1351001

PATIENT

DRUGS (3)
  1. PACLITAXEL. [Suspect]
     Active Substance: PACLITAXEL
     Indication: OVARIAN EPITHELIAL CANCER
     Route: 065
     Dates: start: 20131106, end: 20140117
  2. BEVACIZUMAB [Suspect]
     Active Substance: BEVACIZUMAB
     Indication: OVARIAN EPITHELIAL CANCER
     Dosage: LAST DOSE ADMINISTERED ON 27/DEC/2013 PRIOR TO SAE.
     Route: 065
     Dates: start: 20131106, end: 20140117
  3. CARBOPLATIN. [Suspect]
     Active Substance: CARBOPLATIN
     Indication: OVARIAN EPITHELIAL CANCER
     Route: 065
     Dates: start: 20131106, end: 20140117

REACTIONS (2)
  - Haemorrhage intracranial [Recovered/Resolved]
  - Arthritis [Recovered/Resolved]

NARRATIVE: CASE EVENT DATE: 20140102
